FAERS Safety Report 20761317 (Version 1)
Quarter: 2022Q2

REPORT INFORMATION
  Report Type: Report from Study
  Country: PH (occurrence: PH)
  Receive Date: 20220428
  Receipt Date: 20220428
  Transmission Date: 20220721
  Serious: Yes (Death)
  Sender: FDA-Public Use
  Company Number: PH-NOVARTISPH-NVSC2022PH098111

PATIENT
  Sex: Male

DRUGS (1)
  1. ENTRESTO [Suspect]
     Active Substance: SACUBITRIL\VALSARTAN
     Indication: Product used for unknown indication
     Dosage: UNK
     Route: 065

REACTIONS (6)
  - Cardiogenic shock [Fatal]
  - Cardiac failure acute [Fatal]
  - Congestive cardiomyopathy [Fatal]
  - Hypertension [Fatal]
  - Type 2 diabetes mellitus [Fatal]
  - Acute kidney injury [Fatal]
